FAERS Safety Report 21399150 (Version 1)
Quarter: 2022Q4

REPORT INFORMATION
  Report Type: Report from Study
  Country: US (occurrence: US)
  Receive Date: 20221001
  Receipt Date: 20221001
  Transmission Date: 20230112
  Serious: No
  Sender: FDA-Public Use
  Company Number: US-ABBVIE-4131924

PATIENT
  Age: 51 Year
  Sex: Male

DRUGS (1)
  1. SKYRIZI [Suspect]
     Active Substance: RISANKIZUMAB-RZAA
     Indication: Psoriasis
     Dosage: ONGOING
     Route: 058

REACTIONS (4)
  - Skin irritation [Recovered/Resolved]
  - Blister [Unknown]
  - Psoriasis [Unknown]
  - Alcohol intolerance [Unknown]

NARRATIVE: CASE EVENT DATE: 20220401
